FAERS Safety Report 8504543-0 (Version None)
Quarter: 2012Q3

REPORT INFORMATION
  Report Type: 
  Country: None (occurrence: None)
  Receive Date: 20120711
  Receipt Date: 20120703
  Transmission Date: 20120928
  Serious: Yes (Hospitalization)
  Sender: FDA-Public Use
  Company Number: FR-009507513-1206FRA00127

PATIENT

DRUGS (9)
  1. JANUMET [Suspect]
     Indication: TYPE 2 DIABETES MELLITUS
     Dosage: 1000/50 MG
     Route: 048
     Dates: start: 20110501
  2. LEVOTHYROXINE SODIUM [Concomitant]
     Dosage: 25 A?G, QD
     Route: 048
  3. AMLODIPINE BESYLATE [Concomitant]
     Dosage: 10 MG, QD
  4. IRBESARTAN AND HYDROCHLOROTHIAZIDE [Concomitant]
     Dates: start: 20070101
  5. POLYETHYLENE GLYCOL [Concomitant]
     Dosage: 1 U, BID
  6. LORAZEPAM [Concomitant]
  7. ANAFRANIL [Concomitant]
     Dosage: 10 MG, QD
     Route: 048
  8. MEDIATENSYL [Concomitant]
     Dosage: 60 MG, BID
     Route: 048
  9. AUGMENTIN '125' [Suspect]
     Indication: URINARY TRACT INFECTION

REACTIONS (1)
  - TUBULOINTERSTITIAL NEPHRITIS [None]
